FAERS Safety Report 10177836 (Version 1)
Quarter: 2014Q2

REPORT INFORMATION
  Report Type: Spontaneous
  Country: US (occurrence: US)
  Receive Date: 20140516
  Receipt Date: 20140516
  Transmission Date: 20141212
  Serious: Yes (Other)
  Sender: FDA-Public Use
  Company Number: US-SA-2013SA125637

PATIENT
  Age: 56 Year
  Sex: Male
  Weight: 102 kg

DRUGS (3)
  1. APIDRA [Suspect]
     Indication: TYPE 2 DIABETES MELLITUS
     Dosage: 20 TO 60 UNITS PER DAY
     Route: 058
  2. INSULIN PUMP [Concomitant]
  3. LEVEMIR [Concomitant]
     Indication: DIABETES MELLITUS
     Dosage: DOSE:50 UNIT(S)

REACTIONS (2)
  - Blood glucose increased [Not Recovered/Not Resolved]
  - Hypoglycaemia [Unknown]
